FAERS Safety Report 6020726-6 (Version None)
Quarter: 2008Q4

REPORT INFORMATION
  Report Type: 
  Country: None (occurrence: None)
  Receive Date: 20081223
  Receipt Date: 20081223
  Transmission Date: 20090506
  Serious: No
  Sender: FDA-Public Use
  Company Number: None

PATIENT
  Age: 79 Year
  Sex: Male

DRUGS (1)
  1. CIALIS [Suspect]
     Indication: ERECTILE DYSFUNCTION
     Dosage: 5 MG ONCE DAILY AS NEEDED

REACTIONS (3)
  - CATHETER RELATED COMPLICATION [None]
  - THROMBOSIS [None]
  - URETHRAL HAEMORRHAGE [None]
